FAERS Safety Report 9822196 (Version 1)
Quarter: 2014Q1

REPORT INFORMATION
  Report Type: Spontaneous
  Country: BR (occurrence: BR)
  Receive Date: 20140116
  Receipt Date: 20140116
  Transmission Date: 20141002
  Serious: Yes (Death, Hospitalization)
  Sender: FDA-Public Use
  Company Number: PHHY2014BR002509

PATIENT
  Age: 55 Year
  Sex: Female

DRUGS (3)
  1. CLOMIPRAMINE [Suspect]
     Dosage: 120 DF, UNK
  2. FENTANYL [Concomitant]
  3. MIDAZOLAM [Concomitant]
     Indication: STATUS EPILEPTICUS

REACTIONS (22)
  - Death [Fatal]
  - Suicide attempt [Unknown]
  - Aspiration [Unknown]
  - Eye movement disorder [Not Recovered/Not Resolved]
  - Brain injury [Unknown]
  - Decerebrate posture [Unknown]
  - Brain oedema [Unknown]
  - Rhabdomyolysis [Unknown]
  - Blood creatine phosphokinase increased [Recovering/Resolving]
  - Hypocalcaemia [Unknown]
  - Tremor [Recovered/Resolved]
  - Transaminases increased [Unknown]
  - Metabolic acidosis [Unknown]
  - Electrocardiogram QRS complex shortened [Recovered/Resolved]
  - Dehydration [Unknown]
  - Sedation [Recovered/Resolved]
  - Disorientation [Unknown]
  - Dry mouth [Unknown]
  - Sinus bradycardia [Recovered/Resolved]
  - Hypotension [Unknown]
  - Cardiac arrest [Unknown]
  - Pulseless electrical activity [Unknown]
